FAERS Safety Report 5119457-6 (Version None)
Quarter: 2006Q3

REPORT INFORMATION
  Report Type: 
  Country: None (occurrence: None)
  Receive Date: 20060928
  Receipt Date: 20060912
  Transmission Date: 20061208
  Serious: Yes (Hospitalization)
  Sender: FDA-Public Use
  Company Number: US017891

PATIENT
  Age: 68 Year
  Sex: Male
  Weight: 68.04 kg

DRUGS (2)
  1. TRISENOX [Suspect]
     Indication: ACUTE MYELOID LEUKAEMIA
     Dosage: 17 MG 0.25 MG/KG; DAYS 1-5); DAYS 8-12 PER CYCLE INTRAVENOUS DRIP
     Route: 041
     Dates: start: 20060511, end: 20060630
  2. CYTARABINE [Concomitant]

REACTIONS (5)
  - ACUTE MYELOID LEUKAEMIA [None]
  - CONVULSION [None]
  - MALIGNANT NEOPLASM PROGRESSION [None]
  - POSTOPERATIVE FEVER [None]
  - SUBDURAL HAEMATOMA [None]
